FAERS Safety Report 5025867-8 (Version None)
Quarter: 2006Q2

REPORT INFORMATION
  Report Type: 
  Country: None (occurrence: None)
  Receive Date: 20060608
  Receipt Date: 20060608
  Transmission Date: 20061013
  Serious: Yes (Hospitalization)
  Sender: FDA-Public Use
  Company Number: None

PATIENT
  Age: 75 Year
  Sex: Male
  Weight: 99.3 kg

DRUGS (4)
  1. DIGOXIN [Suspect]
     Dosage: QD, BY MOUTH
     Dates: start: 20060105, end: 20060310
  2. ISOSORBIDE MONONITRATE [Concomitant]
  3. NEPHROCAPS [Concomitant]
  4. SIMVASTATIN [Concomitant]

REACTIONS (3)
  - ANOREXIA [None]
  - ASTHENIA [None]
  - BRADYCARDIA [None]
